FAERS Safety Report 19001707 (Version 1)
Quarter: 2021Q1

REPORT INFORMATION
  Report Type: Spontaneous
  Country: US (occurrence: US)
  Receive Date: 20210312
  Receipt Date: 20210312
  Transmission Date: 20210420
  Serious: No
  Sender: FDA-Public Use
  Company Number: US-FARMAPROD-202012-1753

PATIENT
  Age: 63 Year
  Sex: Male

DRUGS (25)
  1. MAGNESIUM OXIDE. [Concomitant]
     Active Substance: MAGNESIUM OXIDE
  2. DOCUSATE SODIUM. [Concomitant]
     Active Substance: DOCUSATE SODIUM
  3. SPIRONOLACTONE. [Concomitant]
     Active Substance: SPIRONOLACTONE
  4. POTASSIUM CHLORIDE. [Concomitant]
     Active Substance: POTASSIUM CHLORIDE
  5. ALLOPURINOL. [Concomitant]
     Active Substance: ALLOPURINOL
  6. RANOLAZINE. [Concomitant]
     Active Substance: RANOLAZINE
  7. FARXIGA [Concomitant]
     Active Substance: DAPAGLIFLOZIN PROPANEDIOL
  8. REFRESH TEARS [Concomitant]
     Active Substance: CARBOXYMETHYLCELLULOSE SODIUM
  9. VITAMIN E [Concomitant]
     Active Substance: .ALPHA.-TOCOPHEROL
     Dosage: 100/0.25 ML
  10. ATORVASTATIN CALCIUM. [Concomitant]
     Active Substance: ATORVASTATIN CALCIUM
  11. OXERVATE [Suspect]
     Active Substance: CENEGERMIN-BKBJ
     Indication: NEUROTROPHIC KERATOPATHY
     Route: 047
     Dates: start: 20201112
  12. MULTIVITAMINS [Concomitant]
     Active Substance: VITAMINS
  13. VITAMIN D?400 [Concomitant]
  14. CARVEDILOL. [Concomitant]
     Active Substance: CARVEDILOL
  15. ASPIRINE [Concomitant]
     Active Substance: ASPIRIN
  16. PRESERVISION LUTEIN [Concomitant]
     Active Substance: MINERALS\VITAMINS
  17. NITROGLYCERIN. [Concomitant]
     Active Substance: NITROGLYCERIN
     Route: 060
  18. LEVETIRACETAM. [Concomitant]
     Active Substance: LEVETIRACETAM
  19. FUROSEMIDE. [Concomitant]
     Active Substance: FUROSEMIDE
  20. FISH OIL [Concomitant]
     Active Substance: FISH OIL
     Dosage: 100?150 MG
  21. ENTRESTO [Concomitant]
     Active Substance: SACUBITRIL\VALSARTAN
     Dosage: 24 MG?26 MG
  22. PREGABALIN. [Concomitant]
     Active Substance: PREGABALIN
  23. CLOBAZAM. [Concomitant]
     Active Substance: CLOBAZAM
  24. SYSTANE ULTRA [Concomitant]
     Active Substance: POLYETHYLENE GLYCOL 400\PROPYLENE GLYCOL
     Dosage: 0.3?0.4% DROPERETTE
  25. PANTOPRAZOLE SODIUM. [Concomitant]
     Active Substance: PANTOPRAZOLE SODIUM

REACTIONS (1)
  - Drug ineffective [Not Recovered/Not Resolved]

NARRATIVE: CASE EVENT DATE: 202011
